FAERS Safety Report 4274170-2 (Version None)
Quarter: 2004Q1

REPORT INFORMATION
  Report Type: 
  Country: None (occurrence: None)
  Receive Date: 20040115
  Receipt Date: 20040105
  Transmission Date: 20041129
  Serious: Yes (Hospitalization, Other)
  Sender: FDA-Public Use
  Company Number: 2003117440

PATIENT
  Age: 41 Year
  Sex: Female

DRUGS (6)
  1. ZITHROMAX [Suspect]
     Indication: PULMONARY CONGESTION
     Dosage: 500 MG (DAILY), INTRAMUSCULAR
     Route: 030
     Dates: start: 20031107
  2. FEXOFENADINE HYDROCHLORIDE [Concomitant]
  3. ROFECOXIB [Concomitant]
  4. DIAZEPAM [Concomitant]
  5. VICODIN [Concomitant]
  6. SERTRALINE HCL [Concomitant]

REACTIONS (21)
  - ASTHENIA [None]
  - BLOOD CHLORIDE INCREASED [None]
  - BLOOD GLUCOSE INCREASED [None]
  - BLOOD PH INCREASED [None]
  - BLOOD UREA DECREASED [None]
  - CREATINE PHOSPHOKINASE DECREASED [None]
  - DYSPNOEA [None]
  - DYSSTASIA [None]
  - HYPERHIDROSIS [None]
  - HYPERVENTILATION [None]
  - INJECTION SITE ERYTHEMA [None]
  - LYMPHOCYTE COUNT DECREASED [None]
  - MEDICATION ERROR [None]
  - MONOCYTE COUNT DECREASED [None]
  - NEUTROPHIL COUNT INCREASED [None]
  - OEDEMA PERIPHERAL [None]
  - PAIN IN EXTREMITY [None]
  - PCO2 DECREASED [None]
  - PO2 INCREASED [None]
  - TACHYCARDIA [None]
  - WHITE BLOOD CELL COUNT INCREASED [None]
